FAERS Safety Report 9166997 (Version 1)
Quarter: 2013Q1

REPORT INFORMATION
  Report Type: Spontaneous
  Country: FR (occurrence: FR)
  Receive Date: 20130317
  Receipt Date: 20130317
  Transmission Date: 20140127
  Serious: Yes (Hospitalization)
  Sender: FDA-Public Use
  Company Number: FR-TEVA-390507ISR

PATIENT
  Age: 67 None
  Sex: Male

DRUGS (12)
  1. METFORMINE [Suspect]
     Indication: TYPE 2 DIABETES MELLITUS
     Dosage: 2550 MILLIGRAM DAILY;
     Route: 048
     Dates: end: 20110417
  2. ATENOLOL [Suspect]
     Indication: HYPERTENSION
     Dosage: 100 MILLIGRAM DAILY;
     Route: 048
     Dates: end: 20110417
  3. ATENOLOL [Suspect]
     Dosage: 100 MILLIGRAM DAILY;
     Route: 048
     Dates: start: 20110424
  4. VERAPAMIL [Suspect]
     Indication: HYPERTENSION
     Dosage: 240 MILLIGRAM DAILY;
     Route: 048
     Dates: end: 20110417
  5. COKENZEN [Suspect]
     Indication: HYPERTENSION
     Dosage: 1 DOSAGE FORMS DAILY; CANDESARTAN CILEXETIL 16MG/ HYDROCHLOROTHIAZIDE 12.5MG
     Route: 048
     Dates: end: 20110417
  6. GLUCOR [Suspect]
     Indication: TYPE 2 DIABETES MELLITUS
     Dosage: 150 MILLIGRAM DAILY;
     Route: 048
     Dates: end: 20110417
  7. MEDIATENSYL [Suspect]
     Indication: HYPERTENSION
     Dosage: 180 MILLIGRAM DAILY;
     Route: 048
     Dates: end: 20110417
  8. CIPROFIBRATE [Suspect]
     Indication: DYSLIPIDAEMIA
     Dosage: 1 DOSAGE FORMS DAILY;
     Route: 048
     Dates: end: 20110417
  9. SEROPLEX [Suspect]
     Indication: DEPRESSION
     Dosage: 10 MILLIGRAM DAILY;
     Route: 048
     Dates: end: 20110417
  10. SEROPLEX [Suspect]
     Dosage: 10 MILLIGRAM DAILY;
     Route: 048
     Dates: start: 20110424
  11. NORSET [Suspect]
     Indication: DEPRESSION
     Dosage: 15 MILLIGRAM DAILY;
     Route: 048
     Dates: end: 20110417
  12. XANAX [Suspect]
     Indication: DEPRESSION
     Dosage: 3 DOSAGE FORMS DAILY;
     Route: 048
     Dates: end: 20110417

REACTIONS (13)
  - Renal failure acute [Recovered/Resolved]
  - Lactic acidosis [Recovered/Resolved]
  - Hyperkalaemia [Recovered/Resolved]
  - Septic shock [Recovered/Resolved]
  - Bradycardia [Recovered/Resolved]
  - Hypotension [Recovered/Resolved]
  - Staphylococcal bacteraemia [Recovered/Resolved]
  - Malaise [Recovered/Resolved]
  - Diarrhoea [Recovered/Resolved]
  - Vomiting [Recovered/Resolved]
  - Abdominal pain [Recovered/Resolved]
  - Pyrexia [Recovered/Resolved]
  - Disorientation [Recovered/Resolved]
